FAERS Safety Report 22333682 (Version 1)
Quarter: 2023Q2

REPORT INFORMATION
  Report Type: Spontaneous
  Country: CA (occurrence: CA)
  Receive Date: 20230517
  Receipt Date: 20230517
  Transmission Date: 20230721
  Serious: Yes (Hospitalization)
  Sender: FDA-Public Use
  Company Number: CA-APIL-2314347US

PATIENT
  Sex: Male

DRUGS (2)
  1. VRAYLAR [Suspect]
     Active Substance: CARIPRAZINE
     Indication: Bipolar II disorder
     Route: 048
     Dates: start: 202212
  2. VRAYLAR [Suspect]
     Active Substance: CARIPRAZINE
     Indication: Bipolar disorder

REACTIONS (6)
  - Muscular weakness [Recovering/Resolving]
  - Gait disturbance [Unknown]
  - Stiff person syndrome [Unknown]
  - Feeding disorder [Not Recovered/Not Resolved]
  - Myoclonus [Unknown]
  - Off label use [Unknown]
